FAERS Safety Report 25079152 (Version 1)
Quarter: 2025Q1

REPORT INFORMATION
  Report Type: Report from Study
  Country: BR (occurrence: BR)
  Receive Date: 20250314
  Receipt Date: 20250314
  Transmission Date: 20250409
  Serious: Yes (Hospitalization, Other)
  Sender: EMD SERONO INC
  Company Number: BR-Merck Healthcare KGaA-2024046651

PATIENT
  Age: 42 Year
  Sex: Female

DRUGS (2)
  1. MAVENCLAD [Suspect]
     Active Substance: CLADRIBINE
     Indication: Multiple sclerosis
     Dates: start: 20230719
  2. MAVENCLAD [Suspect]
     Active Substance: CLADRIBINE

REACTIONS (13)
  - Influenza [Recovered/Resolved]
  - Sinusitis [Recovered/Resolved]
  - Decreased immune responsiveness [Not Recovered/Not Resolved]
  - Asthma [Recovered/Resolved]
  - Respiratory tract infection [Recovered/Resolved]
  - Oral herpes [Recovered/Resolved]
  - Malaise [Recovered/Resolved]
  - Aphthous ulcer [Unknown]
  - Stress [Unknown]
  - Middle insomnia [Unknown]
  - Fatigue [Unknown]
  - Memory impairment [Unknown]
  - Condition aggravated [Unknown]

NARRATIVE: CASE EVENT DATE: 20240801
